FAERS Safety Report 21033151 (Version 1)
Quarter: 2022Q3

REPORT INFORMATION
  Report Type: Spontaneous
  Country: US (occurrence: US)
  Receive Date: 20220701
  Receipt Date: 20220701
  Transmission Date: 20221027
  Serious: No
  Sender: FDA-Public Use
  Company Number: US-GLAXOSMITHKLINE-USCH2022022726

PATIENT
  Sex: Male

DRUGS (1)
  1. ADVIL LIQUI-GELS [Suspect]
     Active Substance: IBUPROFEN
     Indication: Ear pain
     Dosage: UNK

REACTIONS (4)
  - Tongue discomfort [Recovering/Resolving]
  - Dysphagia [Unknown]
  - Product use in unapproved indication [Recovering/Resolving]
  - Wrong technique in product usage process [Recovering/Resolving]
